FAERS Safety Report 9134058 (Version 1)
Quarter: 2013Q1

REPORT INFORMATION
  Report Type: Report from Study
  Country: SE (occurrence: SE)
  Receive Date: 20130304
  Receipt Date: 20130304
  Transmission Date: 20140127
  Serious: Yes (Hospitalization)
  Sender: FDA-Public Use
  Company Number: SE-AMGEN-SWECT2013014434

PATIENT
  Age: 69 Year
  Sex: Male

DRUGS (3)
  1. ETANERCEPT [Suspect]
     Indication: RHEUMATOID ARTHRITIS
     Dosage: 50 MG, QWK
     Route: 058
     Dates: start: 20030623, end: 20050108
  2. ETANERCEPT [Suspect]
     Indication: PSORIASIS
  3. SALAZOPYRIN EN [Concomitant]
     Dosage: UNK
     Route: 048
     Dates: start: 20030623, end: 20050108

REACTIONS (2)
  - Adrenal insufficiency [Recovering/Resolving]
  - Lymphoma [Recovering/Resolving]
